FAERS Safety Report 6099211-1 (Version None)
Quarter: 2009Q1

REPORT INFORMATION
  Report Type: 
  Country: None (occurrence: None)
  Receive Date: 20090303
  Receipt Date: 20090219
  Transmission Date: 20090719
  Serious: Yes (Other)
  Sender: FDA-Public Use
  Company Number: MA-JNJFOC-20090204728

PATIENT
  Age: 59 Year
  Sex: Female

DRUGS (1)
  1. INFLIXIMAB [Suspect]
     Indication: ANKYLOSING SPONDYLITIS
     Dosage: 4 INFUSIONS ON UNSPECIFIED DATES; RECEIVED AT WEEK 0, 2, 6, AND THEN EVERY 8 WEEKS
     Route: 042

REACTIONS (1)
  - LUPUS-LIKE SYNDROME [None]
